FAERS Safety Report 8421317-X (Version None)
Quarter: 2012Q2

REPORT INFORMATION
  Report Type: 
  Country: None (occurrence: None)
  Receive Date: 20120608
  Receipt Date: 20120530
  Transmission Date: 20120825
  Serious: No
  Sender: FDA-Public Use
  Company Number: PHHY2011JP57196

PATIENT
  Sex: Female

DRUGS (9)
  1. TASIGNA [Suspect]
     Dosage: 400 MG, DAILY
     Route: 048
     Dates: start: 20091029, end: 20091125
  2. TASIGNA [Suspect]
     Dosage: 800 MG, UNK
     Route: 048
     Dates: start: 20091126
  3. SELBEX [Concomitant]
     Indication: GASTRITIS
     Dates: start: 20090528
  4. PREDNISOLONE [Concomitant]
     Dosage: 5 MG,
  5. GASMOTIN [Concomitant]
     Indication: GASTRITIS
     Dates: start: 20090525
  6. EPINASTINE HYDROCHLORIDE [Concomitant]
     Dosage: 20 MG,
     Route: 048
     Dates: start: 20091015, end: 20091219
  7. TASIGNA [Suspect]
     Indication: CHRONIC MYELOID LEUKAEMIA
     Dosage: 200 MG, DAILY
     Route: 048
     Dates: start: 20091015, end: 20091028
  8. PREDNISOLONE [Concomitant]
     Dosage: 25 MG,
     Route: 048
     Dates: end: 20091125
  9. PREDNISOLONE [Concomitant]
     Dosage: 10 MG,
     Dates: start: 20091015

REACTIONS (1)
  - HYPERTENSION [None]
